FAERS Safety Report 24198456 (Version 1)
Quarter: 2024Q3

REPORT INFORMATION
  Report Type: Spontaneous
  Country: FR (occurrence: FR)
  Receive Date: 20240812
  Receipt Date: 20240812
  Transmission Date: 20241017
  Serious: Yes (Other)
  Sender: AUROBINDO
  Company Number: FR-AFSSAPS-AVMP2024000221

PATIENT
  Age: 25 Year
  Sex: Male

DRUGS (3)
  1. TRAMADOL [Suspect]
     Active Substance: TRAMADOL\TRAMADOL HYDROCHLORIDE
     Indication: Product used for unknown indication
     Dosage: 1500 MILLIGRAM, ONCE A DAY
     Route: 065
     Dates: start: 2021
  2. TRAMADOL [Suspect]
     Active Substance: TRAMADOL\TRAMADOL HYDROCHLORIDE
     Dosage: 300 MILLIGRAM, ONCE A DAY (WITH LYRICA, THERE WAS DIFFICULTY IN SUPPLYING TRAMADOL)
     Route: 065
     Dates: start: 202303
  3. LYRICA [Suspect]
     Active Substance: PREGABALIN
     Indication: Product used for unknown indication
     Dosage: 3 GRAM, ONCE A DAY (2 TABLETS OF 300MG PER DOSE, EVERY 2 HOURS)
     Route: 065
     Dates: start: 202303

REACTIONS (1)
  - Drug use disorder [Recovering/Resolving]

NARRATIVE: CASE EVENT DATE: 20230301
